FAERS Safety Report 5370700-8 (Version None)
Quarter: 2007Q2

REPORT INFORMATION
  Report Type: 
  Country: None (occurrence: None)
  Receive Date: 20070618
  Receipt Date: 20060906
  Transmission Date: 20071010
  Serious: Yes (Other)
  Sender: FDA-Public Use
  Company Number: PHEH2006US11459

PATIENT
  Sex: Female

DRUGS (1)
  1. GLEEVEC(IMATINIB) UKNOWN [Suspect]
     Indication: CHRONIC MYELOID LEUKAEMIA
     Dosage: 400 MG, QD, ORAL
     Route: 048

REACTIONS (1)
  - BONE MARROW FAILURE [None]
